FAERS Safety Report 20179230 (Version 4)
Quarter: 2022Q2

REPORT INFORMATION
  Report Type: Spontaneous
  Country: DE (occurrence: DE)
  Receive Date: 20211214
  Receipt Date: 20220412
  Transmission Date: 20220721
  Serious: Yes (Hospitalization)
  Sender: FDA-Public Use
  Company Number: DE-CELGENE-DEU-20211002974

PATIENT
  Age: 72 Year
  Sex: Male
  Weight: 82.5 kg

DRUGS (34)
  1. AZACITIDINE [Suspect]
     Active Substance: AZACITIDINE
     Indication: Myelodysplastic syndrome
     Dosage: 75 MILLIGRAM/SQ. METER
     Route: 059
     Dates: start: 20210915, end: 20210915
  2. AZACITIDINE [Suspect]
     Active Substance: AZACITIDINE
     Dosage: 75 MILLIGRAM/SQ. METER
     Route: 059
     Dates: start: 20210916, end: 20210916
  3. AZACITIDINE [Suspect]
     Active Substance: AZACITIDINE
     Dosage: 75 MILLIGRAM/SQ. METER
     Route: 059
     Dates: start: 20210913, end: 20210913
  4. AZACITIDINE [Suspect]
     Active Substance: AZACITIDINE
     Dosage: 75 MILLIGRAM/SQ. METER
     Route: 059
     Dates: start: 20210920, end: 20210920
  5. AZACITIDINE [Suspect]
     Active Substance: AZACITIDINE
     Dosage: 75 MILLIGRAM/SQ. METER
     Route: 059
     Dates: start: 20210917, end: 20210917
  6. AZACITIDINE [Suspect]
     Active Substance: AZACITIDINE
     Dosage: 75 MILLIGRAM/SQ. METER
     Route: 059
     Dates: start: 20210921, end: 20210921
  7. AZACITIDINE [Suspect]
     Active Substance: AZACITIDINE
     Dosage: 75 MILLIGRAM/SQ. METER
     Route: 059
     Dates: start: 20210914, end: 20210914
  8. AZACITIDINE [Suspect]
     Active Substance: AZACITIDINE
     Dosage: 525 MILLIGRAM/SQ. METER, Q28D,75 MILLIGRAM/SQ. METER
     Route: 059
     Dates: start: 20210913, end: 20210921
  9. AZACITIDINE [Suspect]
     Active Substance: AZACITIDINE
     Dosage: 525 MILLIGRAM/SQ. METER, QD.75 MILLIGRAM/SQ. METER START:29-NOV-2021
     Route: 058
  10. VENETOCLAX [Suspect]
     Active Substance: VENETOCLAX
     Indication: Myelodysplastic syndrome
     Dosage: 5600 MILLIGRAM, Q28D, 400 MILLIGRAM
     Route: 048
     Dates: start: 20210913, end: 20210926
  11. VENETOCLAX [Suspect]
     Active Substance: VENETOCLAX
     Dosage: 5600 MILLIGRAM, Q28D, 400 MILLIGRAM, START:29-NOV-2021
     Route: 048
  12. ALLOPURINOL [Concomitant]
     Active Substance: ALLOPURINOL
     Indication: Chronic obstructive pulmonary disease
     Dosage: 100 MILLIGRAM, QD, 100 MILLIGRAM
     Route: 048
     Dates: start: 201908, end: 20211013
  13. ALLOPURINOL [Concomitant]
     Active Substance: ALLOPURINOL
     Indication: Nephropathy
  14. NEBIVOLOL [Concomitant]
     Active Substance: NEBIVOLOL
     Indication: Hypertension
     Dosage: 2.5 MILLIGRAM
     Route: 048
     Dates: start: 2019
  15. ATORVASTATIN [Concomitant]
     Active Substance: ATORVASTATIN
     Indication: Blood cholesterol increased
     Dosage: 40 MILLIGRAM
     Route: 048
     Dates: start: 2019
  16. GLYCOPYRRONIUM\INDACATEROL [Concomitant]
     Active Substance: GLYCOPYRRONIUM\INDACATEROL
     Indication: Chronic obstructive pulmonary disease
     Dosage: 50/100 UG
     Route: 055
     Dates: start: 2011
  17. GLYCOPYRRONIUM\INDACATEROL [Concomitant]
     Active Substance: GLYCOPYRRONIUM\INDACATEROL
     Dosage: 50 MICROGRAM, QD
     Route: 055
     Dates: start: 2011
  18. SODIUM CHLORIDE [Concomitant]
     Active Substance: SODIUM CHLORIDE
     Indication: Prophylaxis
     Dosage: 500 MILLILITER
     Route: 041
     Dates: start: 20210917, end: 20210917
  19. TORSEMIDE [Concomitant]
     Active Substance: TORSEMIDE
     Indication: Hypertension
     Dosage: 10 MILLIGRAM
     Route: 048
     Dates: start: 2019
  20. FLECAINIDE [Concomitant]
     Active Substance: FLECAINIDE
     Indication: Hypertension
     Dosage: 100 MILLIGRAM
     Route: 048
     Dates: start: 201910
  21. FLECAINIDE [Concomitant]
     Active Substance: FLECAINIDE
     Dosage: 200 MILLIGRAM, QD
     Route: 048
     Dates: start: 201908
  22. PREDNISOLONE [Concomitant]
     Active Substance: PREDNISOLONE
     Indication: Oedema peripheral
     Dosage: 5 MILLIGRAM
     Route: 048
     Dates: start: 2019
  23. ONDANSETRON [Concomitant]
     Active Substance: ONDANSETRON
     Indication: Nausea
     Dosage: 8 MILLIGRAM
     Route: 048
     Dates: start: 20210917, end: 20210927
  24. APIXABAN [Concomitant]
     Active Substance: APIXABAN
     Indication: Anticoagulant therapy
     Dosage: 10 MILLIGRAM
     Route: 048
     Dates: start: 2019
  25. APIXABAN [Concomitant]
     Active Substance: APIXABAN
     Dosage: 10 MILLIGRAM, QD
     Route: 048
     Dates: start: 201908, end: 20211004
  26. PANTOZOL [Concomitant]
     Active Substance: PANTOPRAZOLE SODIUM
     Indication: Prophylaxis
     Dosage: 20 MILLIGRAM
     Route: 048
     Dates: start: 201908
  27. PREGABALIN [Concomitant]
     Active Substance: PREGABALIN
     Indication: Multiple sclerosis
     Dosage: 75 MILLIGRAM
     Route: 048
     Dates: start: 2017
  28. PREGABALIN [Concomitant]
     Active Substance: PREGABALIN
     Indication: Tremor
  29. CANDESARTAN [Concomitant]
     Active Substance: CANDESARTAN
     Indication: Hypertension
     Dosage: 16 MILLIGRAM
     Route: 048
     Dates: start: 2019
  30. CHOLECALCIFEROL [Concomitant]
     Active Substance: CHOLECALCIFEROL
     Indication: Prophylaxis
     Dosage: 20000 IU (INTERNATIONAL UNIT)
     Route: 048
     Dates: start: 2016
  31. TAZOBACTAM [Concomitant]
     Active Substance: TAZOBACTAM
     Indication: Product used for unknown indication
     Dosage: UNK
  32. AMOXICILLIN [Concomitant]
     Active Substance: AMOXICILLIN
     Indication: Product used for unknown indication
     Dosage: UNK
  33. MEROPENEM [Concomitant]
     Active Substance: MEROPENEM
     Indication: Product used for unknown indication
     Dosage: UNK
  34. AMPHOTERICIN B [Concomitant]
     Active Substance: AMPHOTERICIN B
     Indication: Product used for unknown indication
     Dosage: UNK

REACTIONS (7)
  - Pulpitis dental [Not Recovered/Not Resolved]
  - Toothache [Not Recovered/Not Resolved]
  - Cough [Recovered/Resolved]
  - General physical health deterioration [Recovered/Resolved]
  - Fatigue [Recovered/Resolved]
  - Pyrexia [Recovered/Resolved]
  - Febrile neutropenia [Recovered/Resolved]

NARRATIVE: CASE EVENT DATE: 20210927
